FAERS Safety Report 21391617 (Version 4)
Quarter: 2022Q4

REPORT INFORMATION
  Report Type: Spontaneous
  Country: US (occurrence: US)
  Receive Date: 20220929
  Receipt Date: 20221107
  Transmission Date: 20230112
  Serious: No
  Sender: FDA-Public Use
  Company Number: US-PFIZER INC-202201192692

PATIENT
  Age: 55 Year
  Sex: Female
  Weight: 65.77 kg

DRUGS (1)
  1. PREMPRO [Suspect]
     Active Substance: ESTROGENS, CONJUGATED\MEDROXYPROGESTERONE ACETATE
     Indication: Hot flush
     Dosage: UNK (0.3/1.5 MG; COUNT: 90 DAYS SUPPLY)
     Route: 048

REACTIONS (1)
  - Therapeutic product effect incomplete [Recovering/Resolving]
